FAERS Safety Report 4526578-5 (Version None)
Quarter: 2004Q4

REPORT INFORMATION
  Report Type: 
  Country: None (occurrence: None)
  Receive Date: 20041214
  Receipt Date: 20041203
  Transmission Date: 20050328
  Serious: Yes (Hospitalization)
  Sender: FDA-Public Use
  Company Number: JP-JNJFOC-20041105114

PATIENT
  Sex: Female

DRUGS (4)
  1. ITRIZOLE [Suspect]
     Indication: TINEA PEDIS
     Route: 049
     Dates: start: 20040716, end: 20040725
  2. CABERGOLINE [Suspect]
     Indication: PARKINSON'S DISEASE
     Route: 049
  3. TRIHEXYPHENIDYL HCL [Suspect]
     Indication: PARKINSON'S DISEASE
     Route: 049
  4. AMANTADINE HCL [Suspect]
     Indication: PARKINSON'S DISEASE
     Route: 049

REACTIONS (4)
  - BACK PAIN [None]
  - DIFFICULTY IN WALKING [None]
  - NEUROLEPTIC MALIGNANT SYNDROME [None]
  - PARKINSON'S DISEASE [None]
